FAERS Safety Report 10148915 (Version 1)
Quarter: 2014Q2

REPORT INFORMATION
  Report Type: Spontaneous
  Country: US (occurrence: US)
  Receive Date: 20140502
  Receipt Date: 20140502
  Transmission Date: 20141212
  Serious: Yes (Hospitalization)
  Sender: FDA-Public Use
  Company Number: US-BIOGENIDEC-2014BI039242

PATIENT
  Age: 34 Year
  Sex: Female

DRUGS (7)
  1. AVONEX [Suspect]
     Indication: MULTIPLE SCLEROSIS
     Route: 030
     Dates: start: 20011001
  2. AVONEX [Suspect]
     Indication: MULTIPLE SCLEROSIS
     Route: 030
  3. AVONEX [Suspect]
     Indication: MULTIPLE SCLEROSIS
     Route: 030
  4. VITAMIN D3 [Concomitant]
     Indication: CHRONIC FATIGUE SYNDROME
  5. VITAMIN D3 [Concomitant]
     Indication: FIBROMYALGIA
  6. VITAMIN B12 [Concomitant]
     Indication: CHRONIC FATIGUE SYNDROME
  7. VITAMIN B12 [Concomitant]
     Indication: FIBROMYALGIA

REACTIONS (14)
  - Gastric bypass [Recovered/Resolved]
  - Multiple sclerosis [Recovered/Resolved]
  - Memory impairment [Not Recovered/Not Resolved]
  - Neuropathy peripheral [Not Recovered/Not Resolved]
  - Hypoaesthesia [Recovered/Resolved]
  - Motion sickness [Not Recovered/Not Resolved]
  - Balance disorder [Not Recovered/Not Resolved]
  - Joint dislocation [Not Recovered/Not Resolved]
  - Influenza like illness [Not Recovered/Not Resolved]
  - Fatigue [Not Recovered/Not Resolved]
  - Paraesthesia [Not Recovered/Not Resolved]
  - Dizziness [Not Recovered/Not Resolved]
  - Arthralgia [Not Recovered/Not Resolved]
  - Musculoskeletal pain [Not Recovered/Not Resolved]
